FAERS Safety Report 23298185 (Version 1)
Quarter: 2023Q4

REPORT INFORMATION
  Report Type: Spontaneous
  Country: US (occurrence: None)
  Receive Date: 20231214
  Receipt Date: 20231214
  Transmission Date: 20240109
  Serious: Yes (Life-Threatening, Hospitalization)
  Sender: FDA-Public Use
  Company Number: None

PATIENT
  Age: 93 Year
  Sex: Female
  Weight: 51.94 kg

DRUGS (1)
  1. DUPIXENT [Suspect]
     Active Substance: DUPILUMAB
     Dosage: FREQUENCY : EVERY OTHER WEEK;?
     Route: 058

REACTIONS (3)
  - Platelet count decreased [None]
  - Haemoglobin decreased [None]
  - Blood potassium decreased [None]

NARRATIVE: CASE EVENT DATE: 20231208
